FAERS Safety Report 4839136-X (Version None)
Quarter: 2005Q4

REPORT INFORMATION
  Report Type: 
  Country: None (occurrence: None)
  Receive Date: 20051129
  Receipt Date: 20051122
  Transmission Date: 20060501
  Serious: Yes (Other)
  Sender: FDA-Public Use
  Company Number: DE-BRACCO-BRO-009569

PATIENT
  Sex: Female

DRUGS (1)
  1. SOLUTRAST [Suspect]
     Route: 042
     Dates: start: 20020331, end: 20020331

REACTIONS (1)
  - HYPERTHYROIDISM [None]
